FAERS Safety Report 10101925 (Version 1)
Quarter: 2014Q2

REPORT INFORMATION
  Report Type: Spontaneous
  Country: US (occurrence: None)
  Receive Date: 20140423
  Receipt Date: 20140423
  Transmission Date: 20141212
  Serious: No
  Sender: FDA-Public Use
  Company Number: None

PATIENT
  Age: 70 Year
  Sex: Male
  Weight: 97.52 kg

DRUGS (5)
  1. SIMVASTATIN [Suspect]
     Indication: LOW DENSITY LIPOPROTEIN
     Route: 048
     Dates: start: 20140319, end: 20140331
  2. SIMVASTATIN [Suspect]
     Indication: HIGH DENSITY LIPOPROTEIN
     Route: 048
     Dates: start: 20140319, end: 20140331
  3. SPRIOD [Concomitant]
  4. ADVAIR [Concomitant]
  5. FLOMAX [Concomitant]

REACTIONS (2)
  - Amnesia [None]
  - Muscle spasms [None]
